FAERS Safety Report 25312784 (Version 1)
Quarter: 2025Q2

REPORT INFORMATION
  Report Type: Spontaneous
  Country: US (occurrence: None)
  Receive Date: 20250513
  Receipt Date: 20250513
  Transmission Date: 20250716
  Serious: Yes (Disabling, Other)
  Sender: FDA-CTU
  Company Number: None

PATIENT
  Age: 54 Year
  Sex: Female
  Weight: 54 kg

DRUGS (4)
  1. PREDNISONE [Suspect]
     Active Substance: PREDNISONE
     Indication: Hypersensitivity
     Dosage: OTHER QUANTITY : 1 TABLET(S);?FREQUENCY : TWICE A DAY;?
     Route: 048
     Dates: start: 20240615, end: 20240621
  2. VITAMINS [Concomitant]
     Active Substance: VITAMINS
  3. CALCIUM [Concomitant]
     Active Substance: CALCIUM
  4. Systane preservative free artificial tears [Concomitant]

REACTIONS (10)
  - Epiretinal membrane [None]
  - Sjogren^s syndrome [None]
  - Autonomic nervous system imbalance [None]
  - Condition aggravated [None]
  - Flushing [None]
  - Nocturia [None]
  - Insomnia [None]
  - Pollakiuria [None]
  - Hyperhidrosis [None]
  - Lymphocyte count increased [None]

NARRATIVE: CASE EVENT DATE: 20240615
